FAERS Safety Report 19648028 (Version 1)
Quarter: 2021Q3

REPORT INFORMATION
  Report Type: Spontaneous
  Country: IT (occurrence: IT)
  Receive Date: 20210803
  Receipt Date: 20210803
  Transmission Date: 20211014
  Serious: Yes (Hospitalization, Other)
  Sender: FDA-Public Use
  Company Number: IT-SUN PHARMACEUTICAL INDUSTRIES LTD-2021RR-306383

PATIENT
  Age: 45 Year
  Sex: Female

DRUGS (3)
  1. GEMCITABINE. [Suspect]
     Active Substance: GEMCITABINE
     Indication: ENDOMETRIAL CANCER METASTATIC
     Dosage: 1000 MILLIGRAM/SQ. METER, WEEKLY, DAYS 1?8
     Route: 065
  2. PACLITAXEL. [Suspect]
     Active Substance: PACLITAXEL
     Indication: ENDOMETRIAL CANCER METASTATIC
     Dosage: 80 MILLIGRAM/SQ. METER, WEEKLY
     Route: 065
  3. CARBOPLATIN. [Suspect]
     Active Substance: CARBOPLATIN
     Indication: ENDOMETRIAL CANCER METASTATIC
     Dosage: AUC=2, WEEKLY
     Route: 065

REACTIONS (3)
  - Metastases to pelvis [Unknown]
  - Disease progression [Unknown]
  - Therapeutic product effect incomplete [Unknown]
